FAERS Safety Report 9382963 (Version 1)
Quarter: 2013Q3

REPORT INFORMATION
  Report Type: Spontaneous
  Country: GB (occurrence: GB)
  Receive Date: 20130703
  Receipt Date: 20130703
  Transmission Date: 20140515
  Serious: Yes (Other)
  Sender: FDA-Public Use
  Company Number: PHHY2013GB068464

PATIENT
  Age: 73 Year
  Sex: Female

DRUGS (4)
  1. CO-CODAMOL [Suspect]
     Indication: ARTHRALGIA
     Dosage: 2 DF, DAILY
     Route: 048
  2. ASPIRIN [Concomitant]
  3. ANTICHOLESTEROL MEDICATION [Concomitant]
  4. BLOOD PRESSURE MEDICATION [Concomitant]

REACTIONS (5)
  - Malaise [Not Recovered/Not Resolved]
  - Tremor [Not Recovered/Not Resolved]
  - Feeling jittery [Not Recovered/Not Resolved]
  - Agitation [Not Recovered/Not Resolved]
  - Decreased appetite [Not Recovered/Not Resolved]
